FAERS Safety Report 16199411 (Version 7)
Quarter: 2023Q1

REPORT INFORMATION
  Report Type: Spontaneous
  Country: DE (occurrence: DE)
  Receive Date: 20190415
  Receipt Date: 20230214
  Transmission Date: 20230417
  Serious: Yes (Hospitalization, Disabling, Other)
  Sender: FDA-Public Use
  Company Number: DE-KRKA-DE2019K04328SPO

PATIENT
  Age: 58 Year
  Sex: Male

DRUGS (44)
  1. PANTOPRAZOLE [Suspect]
     Active Substance: PANTOPRAZOLE
     Dosage: UNK (PANTOPRAZOL 1A PHARMA)
     Route: 065
     Dates: start: 201207, end: 2014
  2. PANTOPRAZOLE [Suspect]
     Active Substance: PANTOPRAZOLE
     Dosage: UNK (PANTOPRAZOLE TAD)
     Route: 065
     Dates: start: 201601, end: 2016
  3. CELECOXIB [Suspect]
     Active Substance: CELECOXIB
     Dosage: UNK
     Route: 048
     Dates: start: 201501, end: 2016
  4. OMEPRAZOLE [Suspect]
     Active Substance: OMEPRAZOLE
     Dosage: UNK
     Route: 048
     Dates: start: 201307, end: 2013
  5. CANDESARTAN CILEXETIL [Suspect]
     Active Substance: CANDESARTAN CILEXETIL
     Dosage: UNK
     Route: 048
     Dates: start: 201409, end: 2014
  6. AMOXICILLIN [Suspect]
     Active Substance: AMOXICILLIN
     Dosage: UNK (AMOXILLIN AL)
     Route: 065
     Dates: start: 201305, end: 2013
  7. AMOXICILLIN [Suspect]
     Active Substance: AMOXICILLIN
     Dosage: UNK (AMOXILLIN RATIOPHARMA)
     Route: 065
     Dates: start: 201402, end: 2014
  8. AMLODIPINE BESYLATE\HYDROCHLOROTHIAZIDE\OLMESARTAN MEDOXOMIL [Suspect]
     Active Substance: AMLODIPINE BESYLATE\HYDROCHLOROTHIAZIDE\OLMESARTAN MEDOXOMIL
     Dosage: UNK
     Route: 065
     Dates: start: 201202
  9. METOPROLOL SUCCINATE [Suspect]
     Active Substance: METOPROLOL SUCCINATE
     Dosage: UNK
     Route: 048
     Dates: start: 201202, end: 2013
  10. METOPROLOL SUCCINATE [Suspect]
     Active Substance: METOPROLOL SUCCINATE
     Dosage: UNK
     Route: 048
     Dates: start: 201302, end: 2014
  11. ALLOPURINOL [Suspect]
     Active Substance: ALLOPURINOL
     Dosage: UNK (ALLOPURINOL AL)
     Route: 048
     Dates: start: 201307, end: 2016
  12. ALLOPURINOL [Suspect]
     Active Substance: ALLOPURINOL
     Dosage: UNK (ALLOPURINOL AL)
     Route: 048
     Dates: start: 201303, end: 2016
  13. ALLOPURINOL [Suspect]
     Active Substance: ALLOPURINOL
     Dosage: UNK (HEUMANN)
     Route: 048
     Dates: start: 201411, end: 2015
  14. ALLOPURINOL [Suspect]
     Active Substance: ALLOPURINOL
     Dosage: UNK (ALLOPURINOL ABZ)
     Route: 048
     Dates: start: 201512, end: 2017
  15. ALLOPURINOL [Suspect]
     Active Substance: ALLOPURINOL
     Dosage: UNK (ALLOPURINOL HEUMANN)
     Route: 048
     Dates: start: 201311, end: 2014
  16. ALLOPURINOL [Suspect]
     Active Substance: ALLOPURINOL
     Dosage: UNK
     Route: 048
  17. DOXYCYCLINE [Suspect]
     Active Substance: DOXYCYCLINE
     Dosage: UNK
     Route: 048
     Dates: start: 201205, end: 2012
  18. MOXONIDINE [Suspect]
     Active Substance: MOXONIDINE
     Dosage: UNK (MOXONIDIN HEU NET)
     Route: 048
     Dates: start: 201311, end: 2015
  19. MOXONIDINE [Suspect]
     Active Substance: MOXONIDINE
     Dosage: UNK (MOXONIDIN AL)
     Route: 048
     Dates: start: 201603, end: 2016
  20. MOXONIDINE [Suspect]
     Active Substance: MOXONIDINE
     Dosage: UNK (MOXONIDIN AAA PHARMA)
     Route: 048
     Dates: start: 201509, end: 2017
  21. IBUPROFEN [Suspect]
     Active Substance: IBUPROFEN
     Dosage: UNK
     Route: 048
     Dates: start: 201304, end: 2016
  22. IBUPROFEN [Suspect]
     Active Substance: IBUPROFEN
     Dosage: UNK
     Route: 065
  23. TORSEMIDE [Suspect]
     Active Substance: TORSEMIDE
     Dosage: UNK (TORASEMID ABZ)
     Route: 048
     Dates: start: 201405, end: 2014
  24. TORSEMIDE [Suspect]
     Active Substance: TORSEMIDE
     Dosage: UNK (TORASEMID STADA)
     Route: 048
     Dates: start: 201409, end: 2014
  25. TORSEMIDE [Suspect]
     Active Substance: TORSEMIDE
     Dosage: UNK (TORASEMID AL)
     Route: 048
     Dates: start: 201505, end: 2017
  26. TORSEMIDE [Suspect]
     Active Substance: TORSEMIDE
     Dosage: UNK
     Route: 048
  27. MOMETASONE [Suspect]
     Active Substance: MOMETASONE
     Dosage: UNK
     Route: 065
     Dates: start: 201610, end: 2016
  28. VALSARTAN [Suspect]
     Active Substance: VALSARTAN
     Dosage: UNK
     Route: 065
     Dates: start: 201501, end: 2017
  29. OLMESARTAN MEDOXOMIL [Suspect]
     Active Substance: OLMESARTAN MEDOXOMIL
     Dosage: UNK
     Route: 048
     Dates: start: 201311, end: 2014
  30. OLMESARTAN MEDOXOMIL [Suspect]
     Active Substance: OLMESARTAN MEDOXOMIL
     Dosage: UNK
     Route: 065
     Dates: start: 201402, end: 2014
  31. NASONEX [Suspect]
     Active Substance: MOMETASONE FUROATE
     Dosage: UNK
     Route: 048
     Dates: start: 201205, end: 2013
  32. METAMIZOLE SODIUM [Suspect]
     Active Substance: METAMIZOLE SODIUM
     Dosage: UNK
     Route: 065
     Dates: start: 201309, end: 2017
  33. METAMIZOLE SODIUM [Suspect]
     Active Substance: METAMIZOLE SODIUM
     Dosage: UNK
     Route: 065
     Dates: start: 201309, end: 2017
  34. DICLOFENAC SODIUM [Suspect]
     Active Substance: DICLOFENAC SODIUM
     Dosage: UNK
     Route: 065
     Dates: start: 201203, end: 2012
  35. PREDNISOLONE [Suspect]
     Active Substance: PREDNISOLONE
     Dosage: UNK (PREDNISOLON AL)
     Route: 065
     Dates: start: 201309, end: 2013
  36. PREDNISOLONE [Suspect]
     Active Substance: PREDNISOLONE
     Dosage: UNK (PREDNISOLON ACIS)
     Route: 065
     Dates: start: 201311, end: 2013
  37. PREDNISOLONE [Suspect]
     Active Substance: PREDNISOLONE
     Dosage: UNK
     Route: 048
  38. METOCLOPRAMIDE HYDROCHLORIDE [Suspect]
     Active Substance: METOCLOPRAMIDE HYDROCHLORIDE
     Dosage: UNK
     Route: 065
     Dates: start: 201306, end: 2013
  39. DEXAMETHASONE\GENTAMICIN SULFATE [Suspect]
     Active Substance: DEXAMETHASONE\GENTAMICIN SULFATE
     Dosage: UNK
     Route: 065
     Dates: start: 201212, end: 2013
  40. IBU [Suspect]
     Active Substance: IBUPROFEN
     Dosage: UNK
     Route: 065
     Dates: start: 201602, end: 2017
  41. NALOXONE HYDROCHLORIDE\TILIDINE HYDROCHLORIDE [Suspect]
     Active Substance: NALOXONE HYDROCHLORIDE\TILIDINE HYDROCHLORIDE
     Dosage: UNK
     Route: 065
     Dates: start: 201409, end: 2016
  42. AMLODIPINE BESYLATE\OLMESARTAN MEDOXOMIL [Suspect]
     Active Substance: AMLODIPINE BESYLATE\OLMESARTAN MEDOXOMIL
     Dosage: UNK
     Route: 065
     Dates: start: 201202, end: 2013
  43. NALOXONE HYDROCHLORIDE\TILIDINE HYDROCHLORIDE [Suspect]
     Active Substance: NALOXONE HYDROCHLORIDE\TILIDINE HYDROCHLORIDE
     Dosage: UNK
     Route: 065
     Dates: start: 201409, end: 2016
  44. METAMIZOLE MAGNESIUM [Suspect]
     Active Substance: METAMIZOLE MAGNESIUM
     Dosage: UNK
     Route: 065
     Dates: start: 201309, end: 2017

REACTIONS (1)
  - Papillary renal cell carcinoma [Unknown]

NARRATIVE: CASE EVENT DATE: 20170501
